FAERS Safety Report 14701355 (Version 1)
Quarter: 2018Q1

REPORT INFORMATION
  Report Type: Spontaneous
  Country: FR (occurrence: FR)
  Receive Date: 20180330
  Receipt Date: 20180330
  Transmission Date: 20180509
  Serious: Yes (Death, Hospitalization, Other)
  Sender: FDA-Public Use
  Company Number: FR-PFIZER INC-2018133066

PATIENT
  Sex: Male

DRUGS (5)
  1. XTANDI [Suspect]
     Active Substance: ENZALUTAMIDE
     Dosage: 3 DF, DAILY
     Route: 048
     Dates: start: 20170131
  2. ESTRACYT [Suspect]
     Active Substance: ESTRAMUSTINE PHOSPHATE SODIUM
     Dosage: UNK
     Route: 065
     Dates: start: 201503
  3. ELIGARD [Suspect]
     Active Substance: LEUPROLIDE ACETATE
     Dosage: 1 DF, EVERY 6 MONTHS
     Route: 051
     Dates: start: 201501
  4. XTANDI [Suspect]
     Active Substance: ENZALUTAMIDE
     Indication: PROSTATE CANCER METASTATIC
     Dosage: 2 DF, DAILY
     Route: 048
     Dates: start: 20150423
  5. DECAPEPTYL /00486501/ [Concomitant]
     Active Substance: GONADORELIN
     Dosage: UNK

REACTIONS (8)
  - Vascular dementia [Fatal]
  - Prostatic specific antigen increased [Unknown]
  - Hallucination [Fatal]
  - Phlebitis [Unknown]
  - Restless legs syndrome [Fatal]
  - Confusional state [Fatal]
  - Amnesia [Unknown]
  - Encephalopathy [Fatal]

NARRATIVE: CASE EVENT DATE: 201503
